FAERS Safety Report 6928181-6 (Version None)
Quarter: 2010Q3

REPORT INFORMATION
  Report Type: 
  Country: None (occurrence: None)
  Receive Date: 20100810
  Receipt Date: 20100804
  Transmission Date: 20110219
  Serious: Yes (Death)
  Sender: FDA-Public Use
  Company Number: 2010US003130

PATIENT
  Age: 48 Year
  Sex: Male

DRUGS (1)
  1. PROGRAF [Suspect]
     Indication: BONE MARROW TRANSPLANT

REACTIONS (2)
  - GRAFT VERSUS HOST DISEASE [None]
  - OFF LABEL USE [None]
